FAERS Safety Report 4855096-X (Version None)
Quarter: 2005Q4

REPORT INFORMATION
  Report Type: 
  Country: None (occurrence: None)
  Receive Date: 20051214
  Receipt Date: 20051202
  Transmission Date: 20060501
  Serious: Yes (Hospitalization, Other)
  Sender: FDA-Public Use
  Company Number: 2005164062

PATIENT
  Sex: Male
  Weight: 82.5547 kg

DRUGS (4)
  1. CELEBREX [Suspect]
     Indication: EPICONDYLITIS
  2. ZOLOFT [Suspect]
     Indication: DEPRESSION
     Dosage: 200 MG (100 MG, 2 IN 1 D),
  3. NAPROSYN [Suspect]
     Indication: EPICONDYLITIS
  4. PRILOSEC [Concomitant]

REACTIONS (5)
  - ABDOMINAL PAIN UPPER [None]
  - DRUG WITHDRAWAL SYNDROME [None]
  - EPICONDYLITIS [None]
  - TREATMENT NONCOMPLIANCE [None]
  - ULCER HAEMORRHAGE [None]
